FAERS Safety Report 21765822 (Version 1)
Quarter: 2022Q4

REPORT INFORMATION
  Report Type: Spontaneous
  Country: DZ (occurrence: DZ)
  Receive Date: 20221222
  Receipt Date: 20221222
  Transmission Date: 20230112
  Serious: Yes (Life-Threatening, Hospitalization, Other)
  Sender: FDA-Public Use
  Company Number: DZ-AMGEN-DZASP2022219169

PATIENT

DRUGS (1)
  1. PANITUMUMAB [Suspect]
     Active Substance: PANITUMUMAB
     Indication: Colorectal cancer metastatic
     Dosage: UNK
     Route: 065

REACTIONS (15)
  - Blood disorder [Unknown]
  - Lymphatic disorder [Unknown]
  - Cardiovascular disorder [Unknown]
  - Eye disorder [Unknown]
  - Gastrointestinal disorder [Unknown]
  - Illness [Unknown]
  - Administration site reaction [Unknown]
  - Immune system disorder [Unknown]
  - Infection [Unknown]
  - Metabolic disorder [Unknown]
  - Musculoskeletal disorder [Unknown]
  - Nervous system disorder [Unknown]
  - Respiratory disorder [Unknown]
  - Skin disorder [Unknown]
  - Mediastinal disorder [Unknown]
